FAERS Safety Report 6710199-X (Version None)
Quarter: 2010Q2

REPORT INFORMATION
  Report Type: 
  Country: None (occurrence: None)
  Receive Date: 20100430
  Receipt Date: 20100416
  Transmission Date: 20101027
  Serious: Yes (Life-Threatening, Hospitalization)
  Sender: FDA-Public Use
  Company Number: 009560

PATIENT
  Sex: Female
  Weight: 72 kg

DRUGS (9)
  1. CERTOLIZUMAB PEGOL (CERTOLIZUMAB PEGOL) [Suspect]
     Indication: RHEUMATOID ARTHRITIS
     Dosage: (400 MG 1X/2 WEEKS, CDP870-027 SUBCUTANEOUS), (400 MG 1X/2 WEEKS SUBCUTANEOUS)
     Route: 058
     Dates: start: 20050831, end: 20060816
  2. CERTOLIZUMAB PEGOL (CERTOLIZUMAB PEGOL) [Suspect]
     Indication: RHEUMATOID ARTHRITIS
     Dosage: (400 MG 1X/2 WEEKS, CDP870-027 SUBCUTANEOUS), (400 MG 1X/2 WEEKS SUBCUTANEOUS)
     Route: 058
     Dates: start: 20060829, end: 20100407
  3. PREDNISONE [Concomitant]
  4. EUTIROX /00068001/ [Concomitant]
  5. CLONAZEPAM [Concomitant]
  6. OMEPRAZOLE [Concomitant]
  7. FLUOXETINE [Concomitant]
  8. ATORVASTATIN [Concomitant]
  9. ASPIRIN [Concomitant]

REACTIONS (12)
  - BLOOD BILIRUBIN INCREASED [None]
  - BLOOD CREATINE INCREASED [None]
  - DEHYDRATION [None]
  - ESCHERICHIA URINARY TRACT INFECTION [None]
  - GASTROENTERITIS [None]
  - HAEMOGLOBIN DECREASED [None]
  - INTERVERTEBRAL DISC DISORDER [None]
  - LIVER DISORDER [None]
  - RADICULOPATHY [None]
  - SALMONELLA TEST POSITIVE [None]
  - SALMONELLOSIS [None]
  - WHITE BLOOD CELL COUNT DECREASED [None]
